FAERS Safety Report 7244013-3 (Version None)
Quarter: 2011Q1

REPORT INFORMATION
  Report Type: 
  Country: None (occurrence: None)
  Receive Date: 20110125
  Receipt Date: 20110118
  Transmission Date: 20110831
  Serious: Yes (Death, Other)
  Sender: FDA-Public Use
  Company Number: JP-MERCK-1012USA04158

PATIENT
  Age: 86 Year
  Sex: Male

DRUGS (9)
  1. JANUVIA [Suspect]
     Indication: BLOOD GLUCOSE ABNORMAL
     Route: 048
     Dates: start: 20100518, end: 20100928
  2. AMARYL [Suspect]
     Route: 048
     Dates: start: 20100408, end: 20100413
  3. AMARYL [Suspect]
     Route: 048
     Dates: start: 20100518, end: 20100628
  4. DECADRON [Concomitant]
     Indication: PROSTATE CANCER
     Route: 048
     Dates: start: 20100202, end: 20100928
  5. AMARYL [Suspect]
     Route: 048
     Dates: start: 20100414, end: 20100415
  6. BASEN OD [Suspect]
     Indication: BLOOD GLUCOSE ABNORMAL
     Route: 048
     Dates: end: 20100928
  7. AMARYL [Suspect]
     Route: 048
     Dates: start: 20100416, end: 20100517
  8. AMARYL [Suspect]
     Indication: BLOOD GLUCOSE ABNORMAL
     Route: 048
     Dates: start: 20100406, end: 20100407
  9. AMARYL [Suspect]
     Route: 048
     Dates: start: 20100629

REACTIONS (3)
  - DEATH [None]
  - HYPOGLYCAEMIA [None]
  - ALTERED STATE OF CONSCIOUSNESS [None]
